FAERS Safety Report 7772500-8 (Version None)
Quarter: 2011Q3

REPORT INFORMATION
  Report Type: 
  Country: None (occurrence: None)
  Receive Date: 20110922
  Receipt Date: 20110311
  Transmission Date: 20111222
  Serious: No
  Sender: FDA-Public Use
  Company Number: US-ASTRAZENECA-2011SE13841

PATIENT
  Age: 40 Year
  Sex: Male
  Weight: 157.4 kg

DRUGS (5)
  1. LYRICA [Concomitant]
  2. SEROQUEL [Suspect]
     Indication: ABNORMAL BEHAVIOUR
     Route: 048
     Dates: start: 20090101
  3. LEXAPRO [Concomitant]
  4. HYDROCODONE [Concomitant]
  5. VIMPAT [Concomitant]

REACTIONS (2)
  - OFF LABEL USE [None]
  - WEIGHT INCREASED [None]
